FAERS Safety Report 7205541-X (Version None)
Quarter: 2010Q4

REPORT INFORMATION
  Report Type: 
  Country: None (occurrence: None)
  Receive Date: 20101231
  Receipt Date: 20101220
  Transmission Date: 20110411
  Serious: Yes (Other)
  Sender: FDA-Public Use
  Company Number: PHHY2010TR87146

PATIENT
  Age: 30 Year
  Sex: Female

DRUGS (2)
  1. TEGRETOL-XR [Suspect]
     Dosage: 600 MG, BID
     Route: 048
  2. LAMICTAL [Suspect]
     Dosage: 50 MG, BID

REACTIONS (4)
  - BRAIN INJURY [None]
  - EPILEPSY [None]
  - FALL [None]
  - HEADACHE [None]
